FAERS Safety Report 18044547 (Version 3)
Quarter: 2021Q1

REPORT INFORMATION
  Report Type: Report from Study
  Country: FR (occurrence: FR)
  Receive Date: 20200720
  Receipt Date: 20210112
  Transmission Date: 20210419
  Serious: Yes (Hospitalization)
  Sender: FDA-Public Use
  Company Number: FR-SHIRE-FR201946053

PATIENT
  Age: 42 Year
  Sex: Male

DRUGS (9)
  1. TEDUGLUTIDE [Suspect]
     Active Substance: TEDUGLUTIDE
     Dosage: 3.3 MILLIGRAM (0.05 MILLIGRAM/KILOGRAM DAILY DOSE, 7 DOSES PER WEEK), OTHER
     Route: 065
     Dates: start: 20180207, end: 20191201
  2. TEDUGLUTIDE [Suspect]
     Active Substance: TEDUGLUTIDE
     Indication: SHORT-BOWEL SYNDROME
     Dosage: 2.75 MILLIGRAM (0.05 MILLIGRAM/KILOGRAM DAILY DOSE, 7 DOSES PER WEEK), OTHER
     Route: 065
     Dates: start: 20170529, end: 20180206
  3. TEDUGLUTIDE [Suspect]
     Active Substance: TEDUGLUTIDE
     Indication: SHORT-BOWEL SYNDROME
     Dosage: 2.75 MILLIGRAM (0.05 MILLIGRAM/KILOGRAM DAILY DOSE, 7 DOSES PER WEEK), OTHER
     Route: 065
     Dates: start: 20170529, end: 20180206
  4. TEDUGLUTIDE [Suspect]
     Active Substance: TEDUGLUTIDE
     Dosage: 3.3 MILLIGRAM (0.05 MILLIGRAM/KILOGRAM DAILY DOSE, 7 DOSES PER WEEK), OTHER
     Route: 065
     Dates: start: 20180207, end: 20191201
  5. TEDUGLUTIDE [Suspect]
     Active Substance: TEDUGLUTIDE
     Indication: SHORT-BOWEL SYNDROME
     Dosage: 2.75 MILLIGRAM (0.05 MILLIGRAM/KILOGRAM DAILY DOSE, 7 DOSES PER WEEK), OTHER
     Route: 065
     Dates: start: 20170529, end: 20180206
  6. TEDUGLUTIDE [Suspect]
     Active Substance: TEDUGLUTIDE
     Dosage: 3.3 MILLIGRAM (0.05 MILLIGRAM/KILOGRAM DAILY DOSE, 7 DOSES PER WEEK), OTHER
     Route: 065
     Dates: start: 20180207, end: 20191201
  7. TEDUGLUTIDE [Suspect]
     Active Substance: TEDUGLUTIDE
     Indication: SHORT-BOWEL SYNDROME
     Dosage: 2.75 MILLIGRAM (0.05 MILLIGRAM/KILOGRAM DAILY DOSE, 7 DOSES PER WEEK), OTHER
     Route: 065
     Dates: start: 20170529, end: 20180206
  8. TEDUGLUTIDE [Suspect]
     Active Substance: TEDUGLUTIDE
     Dosage: 3.3 MILLIGRAM (0.05 MILLIGRAM/KILOGRAM DAILY DOSE, 7 DOSES PER WEEK), OTHER
     Route: 065
     Dates: start: 20180207, end: 20191201
  9. INNOHEP [Concomitant]
     Active Substance: TINZAPARIN SODIUM
     Indication: THROMBOSIS

REACTIONS (1)
  - Polyp [Recovered/Resolved]

NARRATIVE: CASE EVENT DATE: 201901
